FAERS Safety Report 13836199 (Version 1)
Quarter: 2017Q3

REPORT INFORMATION
  Report Type: Spontaneous
  Country: DE (occurrence: DE)
  Receive Date: 20170804
  Receipt Date: 20170804
  Transmission Date: 20171127
  Serious: Yes (Life-Threatening, Hospitalization, Other)
  Sender: FDA-Public Use
  Company Number: DE-ABBVIE-17K-062-2043979-00

PATIENT
  Age: 66 Year
  Sex: Female
  Weight: 64 kg

DRUGS (6)
  1. SIMPONI [Suspect]
     Active Substance: GOLIMUMAB
     Indication: ANKYLOSING SPONDYLITIS
     Route: 065
     Dates: start: 2009, end: 2015
  2. CANDESARTAN. [Concomitant]
     Active Substance: CANDESARTAN
     Indication: PRODUCT USED FOR UNKNOWN INDICATION
  3. IBUPROFEN. [Concomitant]
     Active Substance: IBUPROFEN
     Indication: PRODUCT USED FOR UNKNOWN INDICATION
  4. HUMIRA [Suspect]
     Active Substance: ADALIMUMAB
     Indication: ANKYLOSING SPONDYLITIS
     Route: 058
     Dates: start: 2009, end: 2015
  5. LERCANIDIPIN [Concomitant]
     Active Substance: LERCANIDIPINE
     Indication: PRODUCT USED FOR UNKNOWN INDICATION
  6. REMICADE [Suspect]
     Active Substance: INFLIXIMAB
     Indication: ANKYLOSING SPONDYLITIS
     Route: 065
     Dates: start: 2009, end: 2015

REACTIONS (14)
  - T-cell lymphoma [Recovering/Resolving]
  - Parakeratosis [Recovering/Resolving]
  - Adenosine deaminase increased [Recovering/Resolving]
  - Pruritus generalised [Recovering/Resolving]
  - B-lymphocyte count increased [Recovering/Resolving]
  - Malignant histiocytosis [Recovering/Resolving]
  - Mycosis fungoides [Recovering/Resolving]
  - Eosinophil count decreased [Unknown]
  - Dermatitis exfoliative [Recovering/Resolving]
  - Red man syndrome [Recovering/Resolving]
  - T-lymphocyte count increased [Recovering/Resolving]
  - Blood lactate dehydrogenase increased [Unknown]
  - Skin disorder [Recovering/Resolving]
  - Gamma-glutamyltransferase increased [Unknown]

NARRATIVE: CASE EVENT DATE: 2015
